FAERS Safety Report 7060996-9 (Version None)
Quarter: 2010Q4

REPORT INFORMATION
  Report Type: 
  Country: None (occurrence: None)
  Receive Date: 20101026
  Receipt Date: 20101021
  Transmission Date: 20110411
  Serious: Yes (Death, Other)
  Sender: FDA-Public Use
  Company Number: TR-JNJFOC-20101005936

PATIENT
  Age: 60 Year
  Sex: Male

DRUGS (1)
  1. DURAGESIC-100 [Suspect]
     Indication: CANCER PAIN
     Dosage: INITIATED APPROXIMATELY ONE YEAR BEFORE LUNG CANCER, WAS TREATED FOR 6 MONTHS.
     Route: 062

REACTIONS (2)
  - LUNG NEOPLASM MALIGNANT [None]
  - PALLOR [None]
